FAERS Safety Report 13804851 (Version 1)
Quarter: 2017Q3

REPORT INFORMATION
  Report Type: Spontaneous
  Country: US (occurrence: US)
  Receive Date: 20170728
  Receipt Date: 20170728
  Transmission Date: 20171127
  Serious: Yes (Death)
  Sender: FDA-Public Use
  Company Number: None

PATIENT
  Age: 56 Year
  Sex: Male
  Weight: 121.5 kg

DRUGS (7)
  1. SILVEDENE CREAM [Concomitant]
  2. TUBIGRIPS [Concomitant]
  3. CYMBALTA [Suspect]
     Active Substance: DULOXETINE HYDROCHLORIDE
     Indication: NEURALGIA
     Route: 048
     Dates: start: 20140405, end: 20140405
  4. CYMBALTA [Suspect]
     Active Substance: DULOXETINE HYDROCHLORIDE
     Indication: DEPRESSION
     Route: 048
     Dates: start: 20140405, end: 20140405
  5. LASIX [Concomitant]
     Active Substance: FUROSEMIDE
  6. LISINOPRIL. [Concomitant]
     Active Substance: LISINOPRIL
  7. ALDACTONE/SPIRONOLACTONE [Concomitant]

REACTIONS (4)
  - Malaise [None]
  - Myocardial infarction [None]
  - Vomiting [None]
  - Drug interaction [None]

NARRATIVE: CASE EVENT DATE: 20140405
